FAERS Safety Report 7641378-5 (Version None)
Quarter: 2011Q3

REPORT INFORMATION
  Report Type: 
  Country: None (occurrence: None)
  Receive Date: 20110728
  Receipt Date: 20110719
  Transmission Date: 20111222
  Serious: Yes (Death, Life-Threatening, Other)
  Sender: FDA-Public Use
  Company Number: DE-CELGENEUS-062-50794-11070115

PATIENT
  Age: 72 Year
  Sex: Male
  Weight: 93.7 kg

DRUGS (2)
  1. HEPARIN SODIUM [Suspect]
     Indication: PROPHYLAXIS
     Dosage: 20000 IU (INTERNATIONAL UNIT)
     Route: 041
     Dates: start: 20110629, end: 20110704
  2. VIDAZA [Suspect]
     Dosage: 150 MILLIGRAM
     Route: 041
     Dates: start: 20110629, end: 20110703

REACTIONS (1)
  - CEREBRAL HAEMORRHAGE [None]
